FAERS Safety Report 11343259 (Version 3)
Quarter: 2015Q3

REPORT INFORMATION
  Report Type: Spontaneous
  Country: US (occurrence: US)
  Receive Date: 20150806
  Receipt Date: 20150812
  Transmission Date: 20151125
  Serious: No
  Sender: FDA-Public Use
  Company Number: US-009507513-1508USA002049

PATIENT
  Age: 18 Year
  Sex: Female
  Weight: 98.87 kg

DRUGS (1)
  1. NEXPLANON [Suspect]
     Active Substance: ETONOGESTREL
     Indication: CONTRACEPTION
     Dosage: 1 ROD/EVERY THREE YEARS
     Route: 059
     Dates: start: 20150514

REACTIONS (4)
  - Implant site pain [Not Recovered/Not Resolved]
  - Discomfort [Not Recovered/Not Resolved]
  - Device kink [Not Recovered/Not Resolved]
  - Device dislocation [Not Recovered/Not Resolved]

NARRATIVE: CASE EVENT DATE: 2015
